FAERS Safety Report 6063025-9 (Version None)
Quarter: 2009Q1

REPORT INFORMATION
  Report Type: 
  Country: None (occurrence: None)
  Receive Date: 20090202
  Receipt Date: 20090202
  Transmission Date: 20090719
  Serious: No
  Sender: FDA-Public Use
  Company Number: None

PATIENT
  Sex: Female
  Weight: 54.4316 kg

DRUGS (1)
  1. OCELLA 3MG BARR LABORATORIES [Suspect]
     Indication: CONTRACEPTION
     Dosage: 1 TABLET ONCE A DAY PO
     Route: 048
     Dates: start: 20080901, end: 20081231

REACTIONS (7)
  - ABDOMINAL DISTENSION [None]
  - ANXIETY [None]
  - BREAST PAIN [None]
  - EMOTIONAL DISTRESS [None]
  - FATIGUE [None]
  - NAUSEA [None]
  - PRODUCT QUALITY ISSUE [None]
